FAERS Safety Report 9452692 (Version 1)
Quarter: 2013Q3

REPORT INFORMATION
  Report Type: Spontaneous
  Country: US (occurrence: None)
  Receive Date: 20130808
  Receipt Date: 20130808
  Transmission Date: 20140515
  Serious: No
  Sender: FDA-Public Use
  Company Number: None

PATIENT
  Sex: Female
  Weight: 94.3 kg

DRUGS (2)
  1. PACLITAXEL (TAXOL) [Suspect]
     Route: 042
  2. CARBOPLATIN [Suspect]

REACTIONS (2)
  - Neutrophil count decreased [None]
  - Lymphocyte count decreased [None]
